FAERS Safety Report 7183445-9 (Version None)
Quarter: 2010Q4

REPORT INFORMATION
  Report Type: 
  Country: None (occurrence: None)
  Receive Date: 20101222
  Receipt Date: 20101216
  Transmission Date: 20110411
  Serious: Yes (Hospitalization)
  Sender: FDA-Public Use
  Company Number: US-ENDO PHARMACEUTICALS INC.-VANT20100075

PATIENT
  Sex: Male
  Weight: 86.714 kg

DRUGS (11)
  1. VANTAS [Suspect]
     Indication: PROSTATE CANCER
     Route: 058
     Dates: start: 20100514
  2. ZOLPIDEM TARTRATE [Concomitant]
     Dosage: 10 MG
     Route: 048
     Dates: start: 20101116
  3. PANTOPRAZOLE SODIUM [Concomitant]
     Route: 048
     Dates: start: 20101102
  4. VOLTAREN [Concomitant]
     Indication: ARTHROPATHY
     Dosage: 1 %
     Route: 061
     Dates: start: 20101102
  5. ASPIRIN [Concomitant]
     Route: 048
     Dates: start: 20101004
  6. PLAVIX [Concomitant]
     Route: 048
     Dates: start: 20100914, end: 20101005
  7. LISINOPRIL [Concomitant]
     Dates: start: 20100810
  8. ZOCOR [Concomitant]
     Route: 048
     Dates: start: 20100719
  9. PAXIL [Concomitant]
     Route: 048
     Dates: start: 20100421, end: 20101004
  10. VITAMIN D [Concomitant]
     Dosage: 50000 UNITS
     Route: 048
     Dates: start: 20100115, end: 20100118
  11. HYDROCHLOROTHIAZIDE [Concomitant]
     Indication: HYPERTENSION
     Route: 048
     Dates: start: 20090320, end: 20100315

REACTIONS (7)
  - ATAXIA [None]
  - DIPLOPIA [None]
  - DIZZINESS [None]
  - HEADACHE [None]
  - HYPERTENSION [None]
  - LETHARGY [None]
  - NAUSEA [None]
